FAERS Safety Report 18927648 (Version 1)
Quarter: 2021Q1

REPORT INFORMATION
  Report Type: Spontaneous
  Country: US (occurrence: US)
  Receive Date: 20210223
  Receipt Date: 20210223
  Transmission Date: 20210420
  Serious: No
  Sender: FDA-Public Use
  Company Number: US-AMGEN-USASP2021026928

PATIENT
  Age: 78 Year
  Sex: Female

DRUGS (1)
  1. PROLIA [Suspect]
     Active Substance: DENOSUMAB
     Indication: MULTIPLE FRACTURES
     Dosage: UNK
     Route: 065
     Dates: start: 20210202

REACTIONS (4)
  - Off label use [Unknown]
  - Pain in extremity [Unknown]
  - Incorrect route of product administration [Unknown]
  - Back pain [Unknown]

NARRATIVE: CASE EVENT DATE: 202102
